FAERS Safety Report 4831339-3 (Version None)
Quarter: 2005Q4

REPORT INFORMATION
  Report Type: 
  Country: None (occurrence: None)
  Receive Date: 20051118
  Receipt Date: 20051021
  Transmission Date: 20060501
  Serious: Yes (Hospitalization)
  Sender: FDA-Public Use
  Company Number: US-BRISTOL-MYERS SQUIBB COMPANY-13154901

PATIENT
  Age: 63 Year
  Sex: Male
  Weight: 78 kg

DRUGS (11)
  1. CETUXIMAB [Suspect]
     Indication: NEOPLASM MALIGNANT
     Route: 042
     Dates: start: 20051010, end: 20051010
  2. CISPLATIN [Suspect]
     Indication: NEOPLASM MALIGNANT
     Route: 042
     Dates: start: 20051010, end: 20051010
  3. RADIATION THERAPY [Suspect]
     Indication: NEOPLASM MALIGNANT
     Dates: start: 20051020, end: 20051020
  4. CALCIUM GLUCONATE [Concomitant]
  5. DOCUSATE [Concomitant]
  6. LIPITOR [Concomitant]
  7. METOPROLOL [Concomitant]
  8. OXAZEPAM [Concomitant]
  9. RANITIDINE [Concomitant]
  10. SYNTHROID [Concomitant]
  11. VASOTEC [Concomitant]

REACTIONS (8)
  - BLOOD CALCIUM DECREASED [None]
  - BLOOD MAGNESIUM DECREASED [None]
  - DEHYDRATION [None]
  - DERMATITIS ACNEIFORM [None]
  - LEUKOPENIA [None]
  - LYMPHOPENIA [None]
  - NEUTROPENIA [None]
  - WEIGHT DECREASED [None]
